FAERS Safety Report 7925041-9 (Version None)
Quarter: 2011Q4

REPORT INFORMATION
  Report Type: 
  Country: None (occurrence: None)
  Receive Date: 20111118
  Receipt Date: 20110331
  Transmission Date: 20120403
  Serious: No
  Sender: FDA-Public Use
  Company Number: US-AMGEN-USASP2011017421

PATIENT
  Age: 58 Year
  Sex: Female
  Weight: 95.238 kg

DRUGS (10)
  1. HYDROCHLOROTHIAZIDE [Concomitant]
     Dosage: 25 MG, UNK
  2. FOLIC ACID [Concomitant]
     Dosage: 8 MG, UNK
  3. ONE DAILY                          /01824901/ [Concomitant]
  4. VITAMIN D [Concomitant]
  5. LEXAPRO [Concomitant]
     Dosage: 10 MG, UNK
  6. ENBREL [Suspect]
     Indication: PRODUCT USED FOR UNKNOWN INDICATION
     Dosage: 50 MG, QWK
  7. METHOTREXATE [Concomitant]
     Dosage: 2.5 MG, UNK
  8. METFORMIN HCL [Concomitant]
     Dosage: 500 MG, UNK
  9. ASPIRIN [Concomitant]
     Dosage: 81 MG, UNK
  10. HYDROXYCHLOROQUINE SULFATE [Concomitant]
     Dosage: 200 MG, UNK

REACTIONS (1)
  - INJECTION SITE HAEMATOMA [None]
